FAERS Safety Report 6228848-1 (Version None)
Quarter: 2009Q2

REPORT INFORMATION
  Report Type: 
  Country: None (occurrence: None)
  Receive Date: 20090615
  Receipt Date: 20071030
  Transmission Date: 20091009
  Serious: Yes (Hospitalization, Other)
  Sender: FDA-Public Use
  Company Number: US-ASTRAZENECA-2007UW17824

PATIENT
  Age: 16924 Day
  Sex: Male
  Weight: 133.8 kg

DRUGS (20)
  1. SEROQUEL [Suspect]
     Indication: DEPRESSION
     Route: 048
     Dates: start: 19971001, end: 20000801
  2. SEROQUEL [Suspect]
     Dosage: 25, 200 MG
     Route: 048
     Dates: start: 20020124
  3. SEROQUEL [Suspect]
     Route: 048
  4. RISPERDAL [Concomitant]
     Route: 048
     Dates: start: 19990101, end: 20010114
  5. PAXIL [Concomitant]
     Route: 048
     Dates: start: 19981211
  6. KLONOPIN [Concomitant]
     Route: 048
     Dates: start: 19950101
  7. DESIPRAMINE HCL [Concomitant]
     Route: 048
     Dates: start: 19990101
  8. TRILEPTAL [Concomitant]
     Route: 048
     Dates: start: 20011201
  9. EFFEXOR XR [Concomitant]
     Route: 048
     Dates: start: 19970110
  10. SERZONE [Concomitant]
     Route: 048
     Dates: start: 19961112
  11. VASOTEC [Concomitant]
     Indication: HYPERTENSION
     Route: 048
     Dates: start: 19961109
  12. PHISOHEX [Concomitant]
     Route: 048
     Dates: start: 19961021
  13. DEPAKOTE ER [Concomitant]
     Route: 048
     Dates: start: 20021122
  14. WELLBUTRIN SR [Concomitant]
     Route: 048
     Dates: start: 20021122
  15. CLORAZEPATE DIPOTASSIUM [Concomitant]
     Route: 048
     Dates: start: 20021122
  16. ACTOS [Concomitant]
     Route: 048
     Dates: start: 20070228
  17. TYLENOL (CAPLET) [Concomitant]
     Route: 048
     Dates: start: 20070228
  18. ZOCOR [Concomitant]
     Route: 048
     Dates: start: 20070228
  19. NORVASC [Concomitant]
     Route: 048
     Dates: start: 20070228
  20. ATIVAN [Concomitant]
     Route: 048
     Dates: start: 20070228

REACTIONS (7)
  - DIABETES MELLITUS [None]
  - NAUSEA [None]
  - NEUROPATHY PERIPHERAL [None]
  - RENAL FAILURE [None]
  - RENAL FAILURE CHRONIC [None]
  - TYPE 2 DIABETES MELLITUS [None]
  - WEIGHT INCREASED [None]
